FAERS Safety Report 18170129 (Version 1)
Quarter: 2020Q3

REPORT INFORMATION
  Report Type: Spontaneous
  Country: US (occurrence: US)
  Receive Date: 20200819
  Receipt Date: 20200819
  Transmission Date: 20201103
  Serious: No
  Sender: FDA-Public Use
  Company Number: US-GW PHARMA-202008USGW02816

PATIENT

DRUGS (2)
  1. EPIDIOLEX [Suspect]
     Active Substance: CANNABIDIOL
     Indication: STATUS EPILEPTICUS
     Dosage: 600 MILLIGRAM, BID
     Route: 048
     Dates: start: 202008
  2. EPIDIOLEX [Suspect]
     Active Substance: CANNABIDIOL
     Indication: LENNOX-GASTAUT SYNDROME
     Dosage: UNK
     Route: 048
     Dates: start: 20190521, end: 202008

REACTIONS (1)
  - Seizure [Unknown]

NARRATIVE: CASE EVENT DATE: 20200805
